FAERS Safety Report 5315993-8 (Version None)
Quarter: 2007Q2

REPORT INFORMATION
  Report Type: 
  Country: None (occurrence: None)
  Receive Date: 20070503
  Receipt Date: 20070421
  Transmission Date: 20071010
  Serious: Yes (Other)
  Sender: FDA-Public Use
  Company Number: US-PFIZER INC-2007032233

PATIENT
  Sex: Male
  Weight: 70.3 kg

DRUGS (5)
  1. LYRICA [Suspect]
     Indication: PAIN MANAGEMENT
     Dates: start: 20070420, end: 20070420
  2. INSULIN [Concomitant]
  3. AMARYL [Concomitant]
  4. XANAX [Concomitant]
  5. DARVON [Concomitant]

REACTIONS (13)
  - FEELING ABNORMAL [None]
  - GAIT DISTURBANCE [None]
  - HEADACHE [None]
  - HEART RATE DECREASED [None]
  - HYPERTENSION [None]
  - HYPOKINESIA [None]
  - HYPOVENTILATION [None]
  - LUNG DISORDER [None]
  - PYREXIA [None]
  - SLEEP DISORDER [None]
  - SYNCOPE [None]
  - TREMOR [None]
  - VISUAL DISTURBANCE [None]
